FAERS Safety Report 7398395-2 (Version None)
Quarter: 2011Q2

REPORT INFORMATION
  Report Type: 
  Country: None (occurrence: None)
  Receive Date: 20110406
  Receipt Date: 20110323
  Transmission Date: 20111010
  Serious: Yes (Disabling)
  Sender: FDA-Public Use
  Company Number: GB-MYLANLABS-2011S1006127

PATIENT
  Sex: Male

DRUGS (4)
  1. AZATHIOPRINE [Suspect]
     Indication: CROHN'S DISEASE
     Route: 048
     Dates: start: 20110201, end: 20110304
  2. FERROUS SULFATE TAB [Concomitant]
     Indication: PRODUCT USED FOR UNKNOWN INDICATION
     Route: 048
  3. MEZAVANT [Concomitant]
     Indication: CROHN'S DISEASE
     Route: 048
  4. PREDNISOLONE [Concomitant]
     Indication: CROHN'S DISEASE
     Route: 048

REACTIONS (3)
  - ARTHRALGIA [None]
  - PYREXIA [None]
  - NIGHT SWEATS [None]
